FAERS Safety Report 8603184-4 (Version None)
Quarter: 2012Q3

REPORT INFORMATION
  Report Type: 
  Country: None (occurrence: None)
  Receive Date: 20120817
  Receipt Date: 20120808
  Transmission Date: 20120928
  Serious: Yes (Hospitalization)
  Sender: FDA-Public Use
  Company Number: JP-ASTRAZENECA-2012SE14554

PATIENT
  Age: 52 Year
  Sex: Female

DRUGS (11)
  1. NEXIUM [Suspect]
     Indication: EPIGASTRIC DISCOMFORT
     Route: 048
     Dates: start: 20120223, end: 20120223
  2. STROCAIN [Concomitant]
     Indication: GASTRITIS
     Dosage: DOSE UNKNOWN
     Route: 048
     Dates: start: 20110101, end: 20120223
  3. MICARDIS [Concomitant]
     Indication: HYPERTENSION
     Route: 048
     Dates: start: 20110101, end: 20120223
  4. MONTELUKAST SODIUM [Concomitant]
     Route: 048
     Dates: start: 20110101, end: 20120223
  5. KAMI-SHOYO-SAN [Concomitant]
     Indication: MENOPAUSAL SYMPTOMS
     Dosage: THREE TIMES A DAY
     Route: 048
     Dates: start: 20110101, end: 20120223
  6. EPHEDRA TEAS [Suspect]
     Indication: RHINITIS ALLERGIC
     Dosage: THREE TIMES A DAY
     Route: 048
     Dates: start: 20120220, end: 20120223
  7. GANATON [Concomitant]
     Indication: GASTRITIS
     Route: 048
     Dates: start: 20110101, end: 20120223
  8. CALBLOCK [Concomitant]
     Indication: HYPERTENSION
     Route: 048
     Dates: start: 20110101, end: 20120223
  9. ESTRIEL [Concomitant]
     Indication: MENOPAUSAL SYMPTOMS
     Route: 048
     Dates: start: 20110101, end: 20120223
  10. PRAVASTATIN SODIUM [Suspect]
     Indication: DYSLIPIDAEMIA
     Route: 048
     Dates: start: 20110101, end: 20120223
  11. REBAMIPIDE [Concomitant]
     Indication: GASTRITIS
     Dosage: THREE TIMES A DAY
     Route: 048
     Dates: start: 20110101, end: 20120223

REACTIONS (1)
  - LIVER DISORDER [None]
